FAERS Safety Report 17392342 (Version 1)
Quarter: 2020Q1

REPORT INFORMATION
  Report Type: Spontaneous
  Country: US (occurrence: US)
  Receive Date: 20200207
  Receipt Date: 20200207
  Transmission Date: 20200409
  Serious: No
  Sender: FDA-Public Use
  Company Number: US-ASTRAZENECA-2020SE16770

PATIENT
  Age: 75 Year
  Sex: Male
  Weight: 91.6 kg

DRUGS (63)
  1. XELJANZ [Concomitant]
     Active Substance: TOFACITINIB CITRATE
     Indication: COLITIS ULCERATIVE
     Dosage: 10 MG
     Route: 065
     Dates: start: 20190919
  2. FERROUS SULFATE. [Concomitant]
     Active Substance: FERROUS SULFATE
     Route: 065
     Dates: start: 20200124
  3. HYDROCHLOROTHIAZIDE. [Concomitant]
     Active Substance: HYDROCHLOROTHIAZIDE
     Indication: ABDOMINAL PAIN
     Dosage: 250 MG
     Route: 065
  4. MESALAMINE. [Concomitant]
     Active Substance: MESALAMINE
     Indication: DIARRHOEA
     Dosage: 1200 MG. 4 AT-A-TIME WITH SUPPER MEAL
     Route: 065
     Dates: start: 20180323, end: 20180828
  5. PANTOPRAZOLE SODIUM. [Concomitant]
     Active Substance: PANTOPRAZOLE SODIUM
     Indication: ABDOMINAL DISCOMFORT
     Route: 065
  6. PREDNISONE. [Concomitant]
     Active Substance: PREDNISONE
     Indication: COLITIS ULCERATIVE
     Route: 065
     Dates: start: 20180915, end: 20191212
  7. NEXIUM 24HR [Suspect]
     Active Substance: ESOMEPRAZOLE MAGNESIUM
     Route: 048
  8. FLUOXETINE [Concomitant]
     Active Substance: FLUOXETINE HYDROCHLORIDE
     Indication: ANXIETY
     Dosage: 20 MG. 1 CAP.BEDTIME
     Route: 065
     Dates: start: 20190310
  9. XELJANZ [Concomitant]
     Active Substance: TOFACITINIB CITRATE
     Indication: COLITIS ULCERATIVE
     Dosage: 10 MG
     Route: 065
     Dates: start: 20190919
  10. TURMERIC W/CURCUMIN [Concomitant]
     Dosage: 500 MG.BREAKFAST
     Route: 065
  11. LACTAID [Concomitant]
     Active Substance: LACTASE
     Dosage: 9000 UNIT TAKEN ONLY PRIOR TO DAIRY
     Route: 065
  12. CIPROFLOXACIN. [Concomitant]
     Active Substance: CIPROFLOXACIN
     Indication: MYALGIA
     Route: 065
  13. LOSARTAN POTASSIUM. [Concomitant]
     Active Substance: LOSARTAN POTASSIUM
     Indication: DIARRHOEA
     Dosage: 100 MG
     Route: 065
  14. PREDNISONE. [Concomitant]
     Active Substance: PREDNISONE
     Indication: COLITIS ULCERATIVE
     Route: 065
     Dates: start: 20180915
  15. FLUOXETINE [Concomitant]
     Active Substance: FLUOXETINE HYDROCHLORIDE
     Indication: STRESS
     Dosage: 20 MG. 1 CAP.BEDTIME
     Route: 065
     Dates: start: 20191210
  16. XELJANZ [Concomitant]
     Active Substance: TOFACITINIB CITRATE
     Indication: COLITIS ULCERATIVE
     Dosage: 10 MG
     Route: 065
     Dates: start: 20191120
  17. FUROSEMIDE. [Concomitant]
     Active Substance: FUROSEMIDE
     Indication: SWELLING
     Dosage: 20MG. G TAB. A.M.
     Route: 065
     Dates: start: 20200107
  18. CLINDAMYCIN. [Concomitant]
     Active Substance: CLINDAMYCIN
     Indication: DIARRHOEA HAEMORRHAGIC
     Dosage: C-DIFF
     Route: 065
  19. AMLODIPINE BESYLATE. [Concomitant]
     Active Substance: AMLODIPINE BESYLATE
     Indication: TACHYCARDIA
     Dosage: 2.5 MG
     Route: 065
  20. DIPEN/ATROP [Concomitant]
     Indication: NAUSEA
     Dosage: 2.5 MG
     Route: 065
  21. PREDNISONE. [Concomitant]
     Active Substance: PREDNISONE
     Indication: COLITIS ULCERATIVE
     Route: 065
     Dates: start: 20190915
  22. VITAMIN B12 [Concomitant]
     Active Substance: CYANOCOBALAMIN
     Route: 065
     Dates: start: 2014
  23. ATENOLOL. [Suspect]
     Active Substance: ATENOLOL
     Indication: HAEMOGLOBIN ABNORMAL
     Route: 048
  24. PROBIOTIC ACIDOPHILUS [Concomitant]
     Active Substance: LACTOBACILLUS ACIDOPHILUS
     Dosage: W/ BREAK 40MG
     Route: 065
     Dates: start: 20180915
  25. FLUOXETINE [Concomitant]
     Active Substance: FLUOXETINE HYDROCHLORIDE
     Indication: ANXIETY
     Dosage: 20 MG. 1 CAP.BEDTIME
     Route: 065
     Dates: start: 20191210
  26. FEXOFENADINE [Concomitant]
     Active Substance: FEXOFENADINE HYDROCHLORIDE
     Indication: ABDOMINAL PAIN UPPER
     Route: 065
  27. LIPITOR [Concomitant]
     Active Substance: ATORVASTATIN CALCIUM
     Indication: ABDOMINAL PAIN UPPER
     Route: 065
  28. LEVOFLOXACIN. [Concomitant]
     Active Substance: LEVOFLOXACIN
     Indication: INSOMNIA
     Dosage: 100 MG
     Route: 065
  29. IV TUBE, LATEX [Concomitant]
     Indication: SWELLING
     Route: 065
  30. STOPPED PREDNISONE [Concomitant]
     Dosage: DOSAGE VARIED DURING PERIOD
     Route: 065
     Dates: start: 20191212
  31. FLUOXETINE [Concomitant]
     Active Substance: FLUOXETINE HYDROCHLORIDE
     Indication: STRESS
     Dosage: 20 MG. 1 CAP.BEDTIME
     Route: 065
     Dates: start: 20190310
  32. NAPROXEN. [Concomitant]
     Active Substance: NAPROXEN
     Indication: ARTHRALGIA
     Route: 065
     Dates: start: 20200107
  33. VITAMIN C [Concomitant]
     Active Substance: ASCORBIC ACID
     Dosage: 1000 MG. 1 AFTER BREAKFAST
     Route: 065
  34. CALMOSEPTINE [Concomitant]
     Active Substance: MENTHOL\ZINC OXIDE
     Indication: DERMATITIS CONTACT
     Dosage: 0.44%-20.625%
     Route: 065
  35. FLAGYL [Concomitant]
     Active Substance: METRONIDAZOLE\METRONIDAZOLE HYDROCHLORIDE
     Indication: DIARRHOEA
     Dosage: 250 MG
     Route: 065
  36. LEVOFLOXACIN. [Concomitant]
     Active Substance: LEVOFLOXACIN
     Indication: RESTLESS LEGS SYNDROME
     Dosage: 100 MG
     Route: 065
  37. RANITIDINE. [Concomitant]
     Active Substance: RANITIDINE
     Indication: DIARRHOEA
     Route: 065
  38. CENTRUM SILVER [Concomitant]
     Active Substance: MINERALS\VITAMINS
     Dosage: 1 TAB AFTER BREAKFAST
     Route: 065
  39. LEVSIN [Concomitant]
     Active Substance: HYOSCYAMINE SULFATE
     Indication: MUSCLE SPASMS
     Dosage: 1 TAB
     Route: 065
     Dates: start: 2005
  40. LESCOL [Concomitant]
     Active Substance: FLUVASTATIN SODIUM
     Indication: ABDOMINAL PAIN UPPER
     Dosage: 250 MG
     Route: 065
  41. LIPITOR [Concomitant]
     Active Substance: ATORVASTATIN CALCIUM
     Indication: HAEMOGLOBIN ABNORMAL
     Route: 065
  42. LEVOFLOXACIN. [Concomitant]
     Active Substance: LEVOFLOXACIN
     Indication: MUSCULAR WEAKNESS
     Dosage: 100 MG
     Route: 065
  43. LEVOFLOXACIN. [Concomitant]
     Active Substance: LEVOFLOXACIN
     Indication: MUSCLE SPASMS
     Dosage: 100 MG
     Route: 065
  44. PANTOPRAZOLE SODIUM. [Concomitant]
     Active Substance: PANTOPRAZOLE SODIUM
     Indication: DIARRHOEA
     Route: 065
  45. DIPEN/ATROP [Concomitant]
     Indication: DIZZINESS
     Dosage: 2.5 MG
     Route: 065
  46. NEXIUM [Suspect]
     Active Substance: ESOMEPRAZOLE MAGNESIUM
     Route: 048
     Dates: start: 2014
  47. TAMSULOSIN [Concomitant]
     Active Substance: TAMSULOSIN
     Dosage: 0.4 MG. 1 BEDTIME
     Route: 065
     Dates: start: 2016
  48. FINASTERIDE. [Concomitant]
     Active Substance: FINASTERIDE
     Dosage: 5.0 MG. 1 BEDTIME
     Route: 065
  49. HYDROCHLOROTHIAZIDE. [Concomitant]
     Active Substance: HYDROCHLOROTHIAZIDE
     Indication: DIARRHOEA
     Dosage: 250 MG
     Route: 065
  50. NEOSPORIN OINTMENT [Concomitant]
     Indication: ERYTHEMA
     Route: 065
  51. POLYSPORIN FIRST AID ANTIBIOTIC [Concomitant]
     Active Substance: BACITRACIN\POLYMYXIN B SULFATE
     Route: 065
  52. ATENOLOL. [Suspect]
     Active Substance: ATENOLOL
     Indication: HEART RATE DECREASED
     Route: 048
  53. LEVOTHYROXINE. [Concomitant]
     Active Substance: LEVOTHYROXINE
     Dosage: 1TAB EARLY A.M. ON EMPTY STOMACH ONCE A DAY
     Route: 065
     Dates: start: 2010
  54. PROBIOTIC [Concomitant]
     Active Substance: PROBIOTICS NOS
     Dosage: 2 CAPSULES @ BREAKFAST
     Route: 065
     Dates: start: 2005
  55. TYLENOL [Concomitant]
     Active Substance: ACETAMINOPHEN
     Indication: ARTHRALGIA
     Dosage: 8HR 650MG CAPLETS (3)
     Route: 065
  56. FEXOFENADINE [Concomitant]
     Active Substance: FEXOFENADINE HYDROCHLORIDE
     Indication: ABDOMINAL PAIN
     Route: 065
  57. HYDROCHLOROTHIAZIDE. [Concomitant]
     Active Substance: HYDROCHLOROTHIAZIDE
     Indication: ABDOMINAL PAIN UPPER
     Dosage: 250 MG
     Route: 065
  58. LIPITOR [Concomitant]
     Active Substance: ATORVASTATIN CALCIUM
     Indication: DIARRHOEA
     Route: 065
  59. RANITIDINE. [Concomitant]
     Active Substance: RANITIDINE
     Indication: ABDOMINAL DISCOMFORT
     Route: 065
  60. DIPEN/ATROP [Concomitant]
     Indication: TINNITUS
     Dosage: 2.5 MG
     Route: 065
  61. DIPEN/ATROP [Concomitant]
     Indication: DIZZINESS
     Dosage: 2.5 MG
     Route: 065
  62. LATEX [Concomitant]
     Active Substance: NATURAL LATEX RUBBER
     Indication: RASH
     Route: 065
  63. ROCEPHINE [Concomitant]
     Active Substance: CEFTRIAXONE SODIUM
     Indication: RASH PRURITIC
     Route: 065

REACTIONS (5)
  - Red blood cell count decreased [Unknown]
  - White blood cell count increased [Unknown]
  - Heart rate irregular [Unknown]
  - Weight increased [Unknown]
  - Swelling [Unknown]

NARRATIVE: CASE EVENT DATE: 201901
